FAERS Safety Report 11316273 (Version 1)
Quarter: 2015Q3

REPORT INFORMATION
  Report Type: Spontaneous
  Country: US (occurrence: US)
  Receive Date: 20150728
  Receipt Date: 20150728
  Transmission Date: 20151125
  Serious: Yes (Other)
  Sender: FDA-Public Use
  Company Number: US-BAYER-2015-385601

PATIENT
  Age: 70 Year
  Sex: Male

DRUGS (2)
  1. BETASERON [Suspect]
     Active Substance: INTERFERON BETA-1B
     Indication: MULTIPLE SCLEROSIS
     Dosage: 0.25 MG, QOD
     Route: 058
  2. AMPYRA [Suspect]
     Active Substance: DALFAMPRIDINE
     Dosage: UNK
     Dates: start: 201506, end: 201506

REACTIONS (4)
  - Multiple sclerosis relapse [None]
  - Injection site pain [None]
  - Injection site haemorrhage [None]
  - Depression [Recovered/Resolved]

NARRATIVE: CASE EVENT DATE: 201506
